FAERS Safety Report 6241608-0 (Version None)
Quarter: 2009Q2

REPORT INFORMATION
  Report Type: 
  Country: None (occurrence: None)
  Receive Date: 20090623
  Receipt Date: 20060622
  Transmission Date: 20091009
  Serious: Yes (Hospitalization)
  Sender: FDA-Public Use
  Company Number: AT-ROCHE-626237

PATIENT
  Sex: Male
  Weight: 75 kg

DRUGS (40)
  1. DACLIZUMAB [Suspect]
     Dosage: BASELINE VISIT
     Route: 042
     Dates: start: 20040621, end: 20040621
  2. DACLIZUMAB [Suspect]
     Dosage: WEEK 2, 4, 6 AND 8 WEEK
     Route: 042
     Dates: start: 20040705
  3. MYCOPHENOLATE MOFETIL [Suspect]
     Dosage: DRUG: MYCOPHENOLAT MOFETIL
     Route: 048
     Dates: start: 20040621
  4. MYCOPHENOLATE MOFETIL [Suspect]
     Route: 048
     Dates: start: 20040622
  5. MYCOPHENOLATE MOFETIL [Suspect]
     Route: 048
     Dates: start: 20040626
  6. MYCOPHENOLATE MOFETIL [Suspect]
     Route: 048
     Dates: start: 20040627
  7. MYCOPHENOLATE MOFETIL [Suspect]
     Route: 048
     Dates: start: 20040630
  8. MYCOPHENOLATE MOFETIL [Suspect]
     Route: 048
     Dates: start: 20040705
  9. MYCOPHENOLATE MOFETIL [Suspect]
     Route: 048
     Dates: start: 20040706
  10. MYCOPHENOLATE MOFETIL [Suspect]
     Route: 048
     Dates: start: 20040707
  11. MYCOPHENOLATE MOFETIL [Suspect]
     Route: 048
     Dates: start: 20040708
  12. CYCLOSPORINE [Suspect]
     Dosage: DOSE: ORAL CAPSULE
     Route: 048
     Dates: start: 20040621, end: 20040816
  13. CYCLOSPORINE [Suspect]
     Dosage: DOSE: ORAL TABLET
     Route: 048
     Dates: start: 20040817, end: 20040829
  14. CYCLOSPORINE [Suspect]
     Dosage: DOSE: ORAL CAPSULE
     Route: 048
     Dates: start: 20040830, end: 20060111
  15. CYCLOSPORINE [Suspect]
     Dosage: DOSE: ORAL CAPSULE
     Route: 048
     Dates: start: 20050616, end: 20060111
  16. CYCLOSPORINE [Suspect]
     Dosage: DOSE: ORAL TABLET
     Route: 048
     Dates: start: 20060112, end: 20060328
  17. PREDNISOLONE [Suspect]
     Route: 048
     Dates: start: 20040624
  18. PREDNISOLONE [Suspect]
     Route: 048
     Dates: start: 20040930
  19. PREDNISOLONE [Suspect]
     Route: 048
     Dates: start: 20050401, end: 20050616
  20. PREDNISOLONE [Suspect]
     Route: 048
     Dates: start: 20070702
  21. METHYLPREDNISOLONE [Suspect]
     Route: 042
     Dates: start: 20040621, end: 20040621
  22. METHYLPREDNISOLONE [Suspect]
     Route: 042
     Dates: start: 20040622, end: 20040622
  23. METHYLPREDNISOLONE [Suspect]
     Route: 042
     Dates: start: 20040623, end: 20040623
  24. BISOPROLOL FUMARATE [Concomitant]
     Route: 048
     Dates: start: 20040622
  25. COTRIMOXAZOLE [Concomitant]
     Dosage: DRUG: TRIMETHOPRIM 160 MG, SULFAMETHAXAZOL
     Route: 048
     Dates: start: 20040623, end: 20050105
  26. VITAMINE D [Concomitant]
     Route: 048
     Dates: start: 20040801
  27. PANTOPRAZOLE SODIUM [Concomitant]
     Route: 048
     Dates: start: 20040601
  28. PLENDIL [Concomitant]
     Route: 048
     Dates: start: 20040622, end: 20040708
  29. PLENDIL [Concomitant]
     Route: 048
     Dates: start: 20040802, end: 20050922
  30. SIMVASTATIN [Concomitant]
     Route: 048
     Dates: start: 20040802, end: 20050105
  31. AMOCILLIN [Concomitant]
     Route: 048
     Dates: start: 20040702, end: 20040706
  32. DOXAZOSIN MESYLATE [Concomitant]
     Route: 048
     Dates: start: 20040622, end: 20040707
  33. FLOXACILLIN SODIUM [Concomitant]
     Route: 048
     Dates: start: 20040621, end: 20040621
  34. METOPROLOL SUCCINATE [Concomitant]
     Route: 048
     Dates: start: 20040622, end: 20040622
  35. ATORVASTATIN CALCIUM [Concomitant]
     Route: 048
     Dates: start: 20050105
  36. CIPROFLOXACIN [Concomitant]
     Route: 042
     Dates: start: 20040811, end: 20040816
  37. CIPROFLOXACIN [Concomitant]
     Route: 048
     Dates: start: 20040817, end: 20040819
  38. LOSARTAN-KALIUM [Concomitant]
     Route: 048
     Dates: start: 20040914, end: 20040930
  39. RAMIPRIL [Concomitant]
     Route: 048
     Dates: start: 20050922, end: 20060505
  40. RAMIPRIL [Concomitant]
     Route: 048
     Dates: start: 20060606

REACTIONS (1)
  - INFLUENZA LIKE ILLNESS [None]
